FAERS Safety Report 12472190 (Version 1)
Quarter: 2016Q2

REPORT INFORMATION
  Report Type: Not Available
  Country: None (occurrence: US)
  Receive Date: 20160616
  Receipt Date: 20160616
  Transmission Date: 20160815
  Serious: No
  Sender: FDA-Public Use
  Company Number: US-AKORN-30577

PATIENT
  Age: 86 Year
  Sex: Female

DRUGS (1)
  1. DORZOLAMIDE HCL-OPHTHALMIC SOLUTION [Suspect]
     Active Substance: DORZOLAMIDE HYDROCHLORIDE

REACTIONS (3)
  - Dry eye [Not Recovered/Not Resolved]
  - Eye pruritus [Not Recovered/Not Resolved]
  - Ocular hyperaemia [Not Recovered/Not Resolved]
